FAERS Safety Report 13332519 (Version 2)
Quarter: 2017Q1

REPORT INFORMATION
  Report Type: Spontaneous
  Country: US (occurrence: US)
  Receive Date: 20170314
  Receipt Date: 20170314
  Transmission Date: 20170428
  Serious: Yes (Other)
  Sender: FDA-Public Use
  Company Number: US-CIPLA-2016US05592

PATIENT

DRUGS (11)
  1. SERTRALINE [Suspect]
     Active Substance: SERTRALINE HYDROCHLORIDE
     Indication: ANXIETY
     Dosage: HALF A TABLET, ONCE DAILY
     Dates: start: 20160419, end: 20160511
  2. SERTRALINE [Interacting]
     Active Substance: SERTRALINE HYDROCHLORIDE
     Indication: DEPRESSION
  3. NEFAZODONE [Interacting]
     Active Substance: NEFAZODONE
     Indication: ANXIETY
     Dosage: 25 MG, BID
  4. NEFAZODONE [Interacting]
     Active Substance: NEFAZODONE
     Indication: DEPRESSION
  5. BUSPIRONE [Interacting]
     Active Substance: BUSPIRONE HYDROCHLORIDE
     Indication: ANXIETY
     Dosage: HALF A TABLET, EVERY 8 HOURS
  6. DICYCLOMINE [Concomitant]
     Active Substance: DICYCLOMINE HYDROCHLORIDE
     Indication: DIARRHOEA
     Dosage: 1 TABLET IN MORNING, HALF A TABLET AT LUNCH AND HALF A TABLET AT DINNER
  7. XANAX [Concomitant]
     Active Substance: ALPRAZOLAM
     Indication: ANXIETY
     Dosage: UNK, PRN
  8. HYDROCODONE-ACETAMINOPHEN [Concomitant]
     Active Substance: ACETAMINOPHEN\HYDROCODONE
     Indication: BACK PAIN
     Dosage: 1 TABLET A DAY, AS NECESSARY
  9. PANTOPRAZOLE [Concomitant]
     Active Substance: PANTOPRAZOLE SODIUM
     Indication: GASTROOESOPHAGEAL REFLUX DISEASE
     Dosage: 40 MG, QD
  10. METHOCARBAMOL. [Concomitant]
     Active Substance: METHOCARBAMOL
     Dosage: HALF A TABLET PER DAY AS NECESSARY
  11. LISINOPRIL. [Concomitant]
     Active Substance: LISINOPRIL
     Indication: HYPERTENSION
     Dosage: 40 MG, QD

REACTIONS (4)
  - Drug interaction [Unknown]
  - Nausea [Recovering/Resolving]
  - Muscle spasms [Recovering/Resolving]
  - Tremor [Unknown]
